FAERS Safety Report 7877309-2 (Version None)
Quarter: 2011Q4

REPORT INFORMATION
  Report Type: 
  Country: None (occurrence: None)
  Receive Date: 20111031
  Receipt Date: 20111024
  Transmission Date: 20120403
  Serious: Yes (Other)
  Sender: FDA-Public Use
  Company Number: PHHO2011FR17259

PATIENT
  Age: 40 Year
  Sex: Female

DRUGS (6)
  1. FLUCONAZOLE [Suspect]
     Indication: ACUTE MYELOID LEUKAEMIA
     Dosage: 400 MG, QD
     Dates: start: 20081031
  2. BUSULFAN [Suspect]
     Indication: ACUTE MYELOID LEUKAEMIA
     Dosage: 40 MG 4 TIMES A DAY
     Route: 042
     Dates: start: 20081023, end: 20081024
  3. MYCOPHENOLATE MOFETIL [Suspect]
     Indication: ACUTE MYELOID LEUKAEMIA
     Dosage: 400 MG, QD
     Route: 048
     Dates: start: 20081029
  4. THYMOGLOBULIN [Concomitant]
     Indication: ACUTE MYELOID LEUKAEMIA
     Dosage: 125 MG, QD
     Dates: start: 20081025, end: 20081026
  5. FLUDARABINE [Suspect]
     Dosage: 45 MG, QD
     Route: 042
     Dates: start: 20081023, end: 20081026
  6. NEORAL [Suspect]
     Indication: ACUTE MYELOID LEUKAEMIA
     Dosage: 500 MG, BID
     Dates: start: 20081025

REACTIONS (1)
  - BONE MARROW FAILURE [None]
